FAERS Safety Report 13739990 (Version 2)
Quarter: 2017Q3

REPORT INFORMATION
  Report Type: Spontaneous
  Country: DE (occurrence: DE)
  Receive Date: 20170711
  Receipt Date: 20170816
  Transmission Date: 20171127
  Serious: Yes (Hospitalization, Other)
  Sender: FDA-Public Use
  Company Number: DE-B.I. PHARMACEUTICALS,INC./RIDGEFIELD-2017-BI-037660

PATIENT
  Age: 38 Year
  Sex: Female

DRUGS (2)
  1. SYNJARDY [Suspect]
     Active Substance: EMPAGLIFLOZIN\METFORMIN HYDROCHLORIDE
     Indication: TYPE 2 DIABETES MELLITUS
     Route: 065
     Dates: start: 20170504, end: 20170517
  2. METFORMIN [Concomitant]
     Active Substance: METFORMIN HYDROCHLORIDE
     Indication: TYPE 2 DIABETES MELLITUS
     Dosage: START DATE APPROXIMATELY 2013
     Route: 065

REACTIONS (7)
  - Urinary tract infection [Unknown]
  - Nausea [Unknown]
  - Acute haemorrhagic ulcerative colitis [Unknown]
  - Vomiting [Unknown]
  - Ketoacidosis [Recovered/Resolved]
  - Urosepsis [Unknown]
  - Altered state of consciousness [Unknown]

NARRATIVE: CASE EVENT DATE: 20170504
